FAERS Safety Report 17819430 (Version 1)
Quarter: 2020Q2

REPORT INFORMATION
  Report Type: Spontaneous
  Country: TR (occurrence: TR)
  Receive Date: 20200523
  Receipt Date: 20200523
  Transmission Date: 20200714
  Serious: Yes (Other)
  Sender: FDA-Public Use
  Company Number: NVSC2019TR045355

PATIENT
  Age: 42 Year
  Sex: Female

DRUGS (3)
  1. AZATHIOPRINE. [Suspect]
     Active Substance: AZATHIOPRINE
     Indication: TAKAYASU^S ARTERITIS
     Dosage: UNK UKN
     Route: 065
  2. METHYLPREDNISOLONE. [Concomitant]
     Active Substance: METHYLPREDNISOLONE
     Indication: TAKAYASU^S ARTERITIS
     Dosage: 1 MG/KG
     Route: 065
  3. METHOTREXATE. [Suspect]
     Active Substance: METHOTREXATE
     Indication: TAKAYASU^S ARTERITIS
     Route: 065

REACTIONS (3)
  - Pancreatitis [Unknown]
  - Product use in unapproved indication [Unknown]
  - Drug ineffective [Unknown]
